FAERS Safety Report 22295766 (Version 1)
Quarter: 2023Q2

REPORT INFORMATION
  Report Type: Report from Study
  Country: US (occurrence: US)
  Receive Date: 20230508
  Receipt Date: 20230508
  Transmission Date: 20230721
  Serious: Yes (Death, Hospitalization, Other)
  Sender: FDA-Public Use
  Company Number: US-MYLANLABS-2023M1047792

PATIENT
  Age: 66 Year
  Sex: Female

DRUGS (6)
  1. REVATIO [Suspect]
     Active Substance: SILDENAFIL CITRATE
     Indication: Pulmonary arterial hypertension
     Dosage: 80 MILLIGRAM, TID
     Route: 065
     Dates: start: 20210625
  2. AMBRISENTAN [Suspect]
     Active Substance: AMBRISENTAN
     Indication: Pulmonary arterial hypertension
     Dosage: 10 MILLIGRAM, QD
     Route: 065
     Dates: start: 20200119
  3. AMBRISENTAN [Suspect]
     Active Substance: AMBRISENTAN
     Dosage: 10 MILLIGRAM, QD
     Route: 065
     Dates: start: 202106
  4. REMODULIN [Suspect]
     Active Substance: TREPROSTINIL
     Indication: Pulmonary arterial hypertension
     Dosage: UNK, (79.6 ML/MIN)
     Route: 065
     Dates: start: 20220918
  5. REMODULIN [Suspect]
     Active Substance: TREPROSTINIL
     Dosage: UNK (79.6 NG, Q1 MIN)
     Route: 065
     Dates: start: 202209
  6. MIDODRINE [Concomitant]
     Active Substance: MIDODRINE
     Dosage: UNK
     Route: 065

REACTIONS (5)
  - Pulmonary arterial hypertension [Fatal]
  - Presyncope [Not Recovered/Not Resolved]
  - Atrial flutter [Not Recovered/Not Resolved]
  - Critical illness [Not Recovered/Not Resolved]
  - Hypotension [Not Recovered/Not Resolved]
